FAERS Safety Report 11501761 (Version 1)
Quarter: 2015Q3

REPORT INFORMATION
  Report Type: Not Available
  Country: FR (occurrence: FR)
  Receive Date: 20150914
  Receipt Date: 20150914
  Transmission Date: 20151125
  Serious: Yes (Hospitalization)
  Sender: FDA-Public Use
  Company Number: FR-MUNDIPHARMA DS AND PHARMACOVIGILANCE-GBR-2015-0030769

PATIENT
  Age: 63 Year
  Sex: Female

DRUGS (9)
  1. TRACLEER [Concomitant]
     Active Substance: BOSENTAN
     Indication: PRODUCT USED FOR UNKNOWN INDICATION
     Route: 065
  2. ENDOXAN                            /00021101/ [Suspect]
     Active Substance: CYCLOPHOSPHAMIDE
     Indication: SCLERODERMA
     Dosage: 1 DF, QOD
     Route: 048
     Dates: start: 201507, end: 20150804
  3. REVATIO [Concomitant]
     Active Substance: SILDENAFIL CITRATE
     Indication: PRODUCT USED FOR UNKNOWN INDICATION
     Route: 065
  4. LYRICA [Concomitant]
     Active Substance: PREGABALIN
     Indication: PRODUCT USED FOR UNKNOWN INDICATION
     Route: 065
  5. INEXIUM                            /01479302/ [Concomitant]
     Active Substance: ESOMEPRAZOLE MAGNESIUM
     Indication: PRODUCT USED FOR UNKNOWN INDICATION
     Route: 065
  6. PROKINYL [Concomitant]
     Active Substance: METOCLOPRAMIDE HYDROCHLORIDE
     Indication: PRODUCT USED FOR UNKNOWN INDICATION
     Route: 065
  7. OXYNORM [Suspect]
     Active Substance: OXYCODONE HYDROCHLORIDE
     Indication: PRODUCT USED FOR UNKNOWN INDICATION
     Dosage: 50 DF/4DAYS
     Route: 048
  8. FENTANYL. [Suspect]
     Active Substance: FENTANYL
     Indication: PRODUCT USED FOR UNKNOWN INDICATION
     Dosage: 1 DF, QOW
     Route: 062
  9. CYCLOPHOSPHAMIDE. [Concomitant]
     Active Substance: CYCLOPHOSPHAMIDE
     Indication: SCLERODERMA
     Dosage: UNK
     Route: 065
     Dates: start: 201507

REACTIONS (1)
  - Intestinal obstruction [Recovered/Resolved]

NARRATIVE: CASE EVENT DATE: 201507
